FAERS Safety Report 19188193 (Version 3)
Quarter: 2024Q3

REPORT INFORMATION
  Report Type: Spontaneous
  Country: CA (occurrence: CA)
  Receive Date: 20210428
  Receipt Date: 20240717
  Transmission Date: 20241016
  Serious: No
  Sender: ASTELLAS
  Company Number: CA-ASTELLAS-2021US014846

PATIENT
  Age: 72 Year
  Sex: Female

DRUGS (1)
  1. MYRBETRIQ [Suspect]
     Active Substance: MIRABEGRON
     Indication: Product used for unknown indication
     Dosage: UNK UNK, UNKNOWN FREQ.
     Route: 065

REACTIONS (1)
  - Accidental exposure to product packaging [Unknown]

NARRATIVE: CASE EVENT DATE: 20210420
